FAERS Safety Report 11274893 (Version 1)
Quarter: 2015Q3

REPORT INFORMATION
  Report Type: Spontaneous
  Country: CH (occurrence: CH)
  Receive Date: 20150716
  Receipt Date: 20150716
  Transmission Date: 20151125
  Serious: Yes (Life-Threatening, Hospitalization, Other)
  Sender: FDA-Public Use
  Company Number: CH-MERCK-1507CHE003749

PATIENT
  Age: 12 Year
  Sex: Female
  Weight: 44 kg

DRUGS (11)
  1. PROPOFOL. [Suspect]
     Active Substance: PROPOFOL
     Indication: INDUCTION OF ANAESTHESIA
     Dosage: UNK
     Route: 042
     Dates: start: 2015
  2. ATROPINE. [Suspect]
     Active Substance: ATROPINE
     Indication: EXTRASYSTOLES
     Dosage: UNK
     Dates: start: 2015
  3. REMIFENTANIL HYDROCHLORIDE [Suspect]
     Active Substance: REMIFENTANIL HYDROCHLORIDE
     Indication: DELAYED RECOVERY FROM ANAESTHESIA
  4. ESMERON [Suspect]
     Active Substance: ROCURONIUM BROMIDE
     Indication: HYPOTONIA
     Dosage: UNK
     Route: 042
     Dates: start: 2015
  5. SOLU-MEDROL [Concomitant]
     Active Substance: METHYLPREDNISOLONE SODIUM SUCCINATE
     Indication: FLUSHING
  6. ESMOLOL HYDROCHLORIDE. [Suspect]
     Active Substance: ESMOLOL HYDROCHLORIDE
     Indication: TACHYCARDIA
     Dosage: UNK
     Dates: start: 2015
  7. FENTANYL. [Suspect]
     Active Substance: FENTANYL
     Indication: INDUCTION OF ANAESTHESIA
     Dosage: UNK
     Route: 042
     Dates: start: 2015
  8. TAVEGYL [Concomitant]
     Active Substance: CLEMASTINE FUMARATE
     Indication: FLUSHING
  9. ESMOLOL HYDROCHLORIDE. [Suspect]
     Active Substance: ESMOLOL HYDROCHLORIDE
     Indication: EXTRASYSTOLES
  10. MIDAZOLAM [Suspect]
     Active Substance: MIDAZOLAM\MIDAZOLAM HYDROCHLORIDE
     Indication: DELAYED RECOVERY FROM ANAESTHESIA
     Dosage: UNK
     Dates: start: 2015
  11. SEVOFLURANE. [Suspect]
     Active Substance: SEVOFLURANE
     Indication: DELAYED RECOVERY FROM ANAESTHESIA
     Dosage: UNK
     Dates: start: 2015

REACTIONS (5)
  - Extrasystoles [Recovered/Resolved]
  - Tachycardia [Recovered/Resolved]
  - Cardiac failure [Recovering/Resolving]
  - Hypertension [Unknown]
  - Rhabdomyolysis [Recovering/Resolving]

NARRATIVE: CASE EVENT DATE: 2015
